FAERS Safety Report 20894009 (Version 2)
Quarter: 2023Q1

REPORT INFORMATION
  Report Type: Report from Study
  Country: US (occurrence: US)
  Receive Date: 20220531
  Receipt Date: 20230223
  Transmission Date: 20230417
  Serious: No
  Sender: FDA-Public Use
  Company Number: US-KYOWAKIRIN-2022BKK006139

PATIENT

DRUGS (6)
  1. CRYSVITA [Suspect]
     Active Substance: BUROSUMAB-TWZA
     Indication: Hereditary hypophosphataemic rickets
     Dosage: 60 MG, 1X/2 WEEKS
     Route: 058
  2. CRYSVITA [Suspect]
     Active Substance: BUROSUMAB-TWZA
     Indication: Hereditary hypophosphataemic rickets
     Dosage: 80 MG, 1X/2 WEEKS
     Route: 058
  3. CRYSVITA [Suspect]
     Active Substance: BUROSUMAB-TWZA
     Dosage: UNK
     Route: 065
     Dates: start: 20230203
  4. PHENYLEPHRINE HCL [Concomitant]
     Active Substance: PHENYLEPHRINE HYDROCHLORIDE
     Indication: Product used for unknown indication
     Dosage: UNK (2.5 % DROPS)
     Route: 065
  5. IBUPROFEN [Concomitant]
     Active Substance: IBUPROFEN
     Indication: Product used for unknown indication
     Dosage: 200 MG
     Route: 065
  6. TYLENOL [Concomitant]
     Active Substance: ACETAMINOPHEN
     Indication: Product used for unknown indication
     Dosage: 325 MG
     Route: 065

REACTIONS (3)
  - Nasopharyngitis [Recovering/Resolving]
  - Pyrexia [Unknown]
  - Productive cough [Unknown]

NARRATIVE: CASE EVENT DATE: 20220401
